FAERS Safety Report 9439586 (Version 3)
Quarter: 2015Q3

REPORT INFORMATION
  Report Type: Spontaneous
  Country: US (occurrence: US)
  Receive Date: 20130805
  Receipt Date: 20150806
  Transmission Date: 20151125
  Serious: Yes (Hospitalization, Other)
  Sender: FDA-Public Use
  Company Number: US-JNJFOC-20130715025

PATIENT
  Sex: Female

DRUGS (9)
  1. TYLENOL [Suspect]
     Active Substance: ACETAMINOPHEN
     Route: 065
  2. LYRICA [Suspect]
     Active Substance: PREGABALIN
     Indication: BURNING SENSATION
     Route: 065
  3. LYRICA [Suspect]
     Active Substance: PREGABALIN
     Indication: BURNING SENSATION
     Route: 065
  4. KLONOPIN [Concomitant]
     Active Substance: CLONAZEPAM
     Indication: PRODUCT USED FOR UNKNOWN INDICATION
  5. LYRICA [Suspect]
     Active Substance: PREGABALIN
     Indication: STAB WOUND
     Route: 065
  6. TYLENOL [Suspect]
     Active Substance: ACETAMINOPHEN
     Indication: PRODUCT USED FOR UNKNOWN INDICATION
     Route: 065
  7. NEURONTIN [Suspect]
     Active Substance: GABAPENTIN
     Indication: PRODUCT USED FOR UNKNOWN INDICATION
     Route: 065
  8. LYRICA [Suspect]
     Active Substance: PREGABALIN
     Indication: STAB WOUND
     Route: 065
  9. CLONAZEPAM. [Concomitant]
     Active Substance: CLONAZEPAM
     Indication: PRODUCT USED FOR UNKNOWN INDICATION
     Dosage: ABOUT 20 YEARS

REACTIONS (17)
  - Nerve injury [Not Recovered/Not Resolved]
  - Diverticulitis [Recovering/Resolving]
  - Memory impairment [Not Recovered/Not Resolved]
  - Anxiety [Not Recovered/Not Resolved]
  - Constipation [Not Recovered/Not Resolved]
  - Weight increased [Recovering/Resolving]
  - Vulvovaginal pain [Not Recovered/Not Resolved]
  - Somnolence [Unknown]
  - Abscess [Recovering/Resolving]
  - Depression [Not Recovered/Not Resolved]
  - Back pain [Recovering/Resolving]
  - Gastric disorder [Not Recovered/Not Resolved]
  - Lethargy [Recovering/Resolving]
  - Irritable bowel syndrome [Recovering/Resolving]
  - Mental impairment [Unknown]
  - Pain [Not Recovered/Not Resolved]
  - Stress [Not Recovered/Not Resolved]

NARRATIVE: CASE EVENT DATE: 2012
